FAERS Safety Report 4843115-6 (Version None)
Quarter: 2005Q4

REPORT INFORMATION
  Report Type: 
  Country: None (occurrence: None)
  Receive Date: 20051031
  Receipt Date: 20050830
  Transmission Date: 20060501
  Serious: Yes (Other)
  Sender: FDA-Public Use
  Company Number: PHEH2005US05429

PATIENT
  Age: 64 Year
  Sex: Male
  Weight: 104.8 kg

DRUGS (4)
  1. LESCOL XL [Suspect]
     Indication: DYSLIPIDAEMIA
     Dosage: 80 MG, QD, ORAL
     Route: 048
     Dates: start: 20050222, end: 20050428
  2. VERAPAMIL [Concomitant]
  3. DOXAZOSIN (DOXAZOSIN) [Concomitant]
  4. LEXAPRO [Concomitant]

REACTIONS (7)
  - BLOOD CREATINE PHOSPHOKINASE INCREASED [None]
  - FATIGUE [None]
  - MUSCLE SPASMS [None]
  - PAIN IN EXTREMITY [None]
  - POLYMYALGIA [None]
  - SWELLING [None]
  - SWELLING FACE [None]
